FAERS Safety Report 6048441-3 (Version None)
Quarter: 2009Q1

REPORT INFORMATION
  Report Type: 
  Country: None (occurrence: None)
  Receive Date: 20090123
  Receipt Date: 20090119
  Transmission Date: 20090719
  Serious: Yes (Other)
  Sender: FDA-Public Use
  Company Number: A0764635A

PATIENT
  Age: 45 Year
  Sex: Female

DRUGS (7)
  1. AVANDARYL [Suspect]
  2. HUMIRA [Suspect]
     Indication: PSORIASIS
     Route: 058
     Dates: start: 20080701
  3. ETANERCEPT [Suspect]
     Indication: PSORIASIS
     Dates: start: 20080101, end: 20080701
  4. VENLAFAXINE [Suspect]
     Indication: DRUG USE FOR UNKNOWN INDICATION
  5. SERTRALINE [Suspect]
     Indication: DRUG USE FOR UNKNOWN INDICATION
  6. LEVOTHYROXINE [Suspect]
     Indication: HYPOTHYROIDISM
  7. EZETIMIBE [Suspect]
     Indication: BLOOD CHOLESTEROL INCREASED

REACTIONS (1)
  - HEPATIC ENZYME INCREASED [None]
